FAERS Safety Report 8283187-2 (Version None)
Quarter: 2012Q2

REPORT INFORMATION
  Report Type: 
  Country: None (occurrence: None)
  Receive Date: 20120413
  Receipt Date: 20120404
  Transmission Date: 20120825
  Serious: Yes (Other)
  Sender: FDA-Public Use
  Company Number: JP-VERTEX PHARMACEUTICALS INC.-AE-2012-004969

PATIENT
  Age: 70 Year
  Sex: Female

DRUGS (10)
  1. INTERFERON [Concomitant]
     Route: 058
     Dates: start: 20120322
  2. RIBAVIRIN [Concomitant]
     Route: 048
     Dates: start: 20120322
  3. INTERFERON [Concomitant]
     Indication: HEPATITIS C
     Route: 058
     Dates: start: 20120211, end: 20120301
  4. CLARITIN REDITABS [Concomitant]
     Route: 048
  5. EPADEL [Concomitant]
     Route: 048
  6. FEROTYM [Concomitant]
     Route: 048
  7. INTERFERON [Concomitant]
     Route: 058
     Dates: start: 20120308, end: 20120315
  8. RIBAVIRIN [Concomitant]
     Route: 048
     Dates: start: 20120308, end: 20120321
  9. RIBAVIRIN [Concomitant]
     Indication: HEPATITIS C
     Route: 048
     Dates: start: 20120211, end: 20120307
  10. TELAVIC (TELAPREVIR) [Suspect]
     Indication: HEPATITIS C
     Route: 048
     Dates: start: 20120211

REACTIONS (3)
  - PLATELET COUNT DECREASED [None]
  - ERYTHEMA [None]
  - ANAEMIA [None]
